FAERS Safety Report 21108325 (Version 1)
Quarter: 2022Q3

REPORT INFORMATION
  Report Type: Report from Study
  Country: US (occurrence: US)
  Receive Date: 20220720
  Receipt Date: 20220720
  Transmission Date: 20221026
  Serious: Yes (Death, Hospitalization, Other)
  Sender: FDA-Public Use
  Company Number: US-BRISTOL-MYERS SQUIBB COMPANY-2022-076603

PATIENT
  Age: 39 Year
  Sex: Male
  Weight: 70.7 kg

DRUGS (1)
  1. NIVOLUMAB [Suspect]
     Active Substance: NIVOLUMAB
     Indication: Kaposi^s sarcoma AIDS related
     Route: 042
     Dates: start: 20181031, end: 20190417

REACTIONS (1)
  - Diabetic ketoacidosis [Fatal]

NARRATIVE: CASE EVENT DATE: 20190708
